FAERS Safety Report 25748161 (Version 2)
Quarter: 2025Q3

REPORT INFORMATION
  Report Type: Spontaneous
  Country: US (occurrence: US)
  Receive Date: 20250901
  Receipt Date: 20250903
  Transmission Date: 20251020
  Serious: No
  Sender: ABBVIE
  Company Number: US-ABBVIE-6438629

PATIENT
  Age: 44 Year
  Sex: Female
  Weight: 61 kg

DRUGS (2)
  1. SKYRIZI [Suspect]
     Active Substance: RISANKIZUMAB-RZAA
     Indication: Rheumatoid arthritis
     Dosage: FORM STRENGTH 150 MILLIGRAM
     Route: 058
     Dates: start: 2025
  2. SKYRIZI [Suspect]
     Active Substance: RISANKIZUMAB-RZAA
     Indication: Psoriasis

REACTIONS (2)
  - Off label use [Unknown]
  - Product storage error [Not Recovered/Not Resolved]

NARRATIVE: CASE EVENT DATE: 20250101
